FAERS Safety Report 26180565 (Version 1)
Quarter: 2025Q4

REPORT INFORMATION
  Report Type: Other
  Country: EU (occurrence: EU)
  Receive Date: 20251219
  Receipt Date: 20251219
  Transmission Date: 20260118
  Serious: Yes (Hospitalization)
  Sender: Atnahs Healthcare
  Company Number: None

PATIENT

DRUGS (7)
  1. CYAMEMAZINE [Suspect]
     Active Substance: CYAMEMAZINE
     Indication: Delirium
     Dosage: NR
     Route: 048
     Dates: start: 20250401, end: 20250422
  2. CYAMEMAZINE [Suspect]
     Active Substance: CYAMEMAZINE
     Dosage: NR
     Route: 048
     Dates: start: 20250429
  3. VALIUM [Suspect]
     Active Substance: DIAZEPAM
     Indication: Delirium
     Dosage: NR
     Route: 048
     Dates: start: 20250401, end: 20250422
  4. VALIUM [Suspect]
     Active Substance: DIAZEPAM
     Dosage: NR
     Route: 048
     Dates: start: 20250429
  5. TERALITHE [Suspect]
     Active Substance: LITHIUM CARBONATE
     Indication: Delirium
     Dosage: 200 MG, DAILY
     Route: 048
     Dates: start: 20250519
  6. OLANZAPINE [Suspect]
     Active Substance: OLANZAPINE
     Indication: Delirium
     Dosage: 10 MG/DAY, THEN 20 MG/DAY FROM 05/05
     Route: 048
     Dates: start: 20250401, end: 20250422
  7. OLANZAPINE [Suspect]
     Active Substance: OLANZAPINE
     Dosage: 10 MG/DAY, THEN 20 MG/DAY FROM 05/05
     Route: 048
     Dates: start: 20250429, end: 20250526

REACTIONS (3)
  - Anaemia [Unknown]
  - Neutropenia [Unknown]
  - Bicytopenia [Unknown]

NARRATIVE: CASE EVENT DATE: 20250522
